FAERS Safety Report 23073419 (Version 3)
Quarter: 2023Q4

REPORT INFORMATION
  Report Type: Report from Study
  Country: US (occurrence: US)
  Receive Date: 20231017
  Receipt Date: 20231207
  Transmission Date: 20240109
  Serious: Yes (Other)
  Sender: FDA-Public Use
  Company Number: US-ABBVIE-5451736

PATIENT
  Sex: Female

DRUGS (1)
  1. SKYRIZI [Suspect]
     Active Substance: RISANKIZUMAB-RZAA
     Indication: Psoriatic arthropathy
     Route: 058
     Dates: start: 20221116

REACTIONS (3)
  - Cyst [Recovering/Resolving]
  - Therapeutic product effect incomplete [Unknown]
  - Dermoid cyst [Recovering/Resolving]

NARRATIVE: CASE EVENT DATE: 20230101
